FAERS Safety Report 3788326 (Version 3)
Quarter: 2012Q4

REPORT INFORMATION
  Report Type: Spontaneous
  Country: US (occurrence: None)
  Receive Date: 20020213
  Receipt Date: 20120920
  Transmission Date: 20130627
  Serious: Yes (Other)
  Sender: FDA-Public Use
  Company Number: 2012-316

PATIENT
  Age: 49 Year
  Sex: Female
  Weight: 77.3 kg

DRUGS (2)
  1. ELESTRIN [Suspect]
     Indication: HOT FLUSH
     Dosage: 2 pump
     Route: 061
     Dates: start: 201106
  2. ELESTRIN [Suspect]
     Indication: MENOPAUSE
     Dosage: 2 pump
     Route: 061
     Dates: start: 201106

REACTIONS (2)
  - Thermal burn [None]
  - Hot flush [None]
